FAERS Safety Report 9735296 (Version 1)
Quarter: 2013Q4

REPORT INFORMATION
  Report Type: Spontaneous
  Country: HR (occurrence: HR)
  Receive Date: 20131206
  Receipt Date: 20131206
  Transmission Date: 20140711
  Serious: Yes (Other)
  Sender: FDA-Public Use
  Company Number: HR-TEVA-446736ISR

PATIENT
  Age: 59 Year
  Sex: Female
  Weight: 57 kg

DRUGS (3)
  1. VILPIN [Suspect]
     Indication: ESSENTIAL HYPERTENSION
     Dosage: 5 MILLIGRAM DAILY;
     Route: 048
     Dates: start: 20120111
  2. ZALDIAR [Concomitant]
     Indication: BACK PAIN
     Route: 048
     Dates: start: 20130108
  3. NOLPAZA [Concomitant]
     Indication: GASTROOESOPHAGEAL REFLUX DISEASE
     Dosage: 20 MILLIGRAM DAILY;
     Route: 048
     Dates: start: 20120229

REACTIONS (2)
  - Facial spasm [Not Recovered/Not Resolved]
  - Muscle spasms [Not Recovered/Not Resolved]
